FAERS Safety Report 9693449 (Version 1)
Quarter: 2013Q4

REPORT INFORMATION
  Report Type: Spontaneous
  Country: US (occurrence: US)
  Receive Date: 20131118
  Receipt Date: 20131118
  Transmission Date: 20140711
  Serious: Yes (Other)
  Sender: FDA-Public Use
  Company Number: US-JNJFOC-20131105460

PATIENT
  Sex: Female
  Weight: 81.65 kg

DRUGS (7)
  1. DURAGESIC [Suspect]
     Indication: ROTATOR CUFF REPAIR
     Route: 062
     Dates: start: 2012
  2. VICODIN [Concomitant]
     Indication: BREAKTHROUGH PAIN
     Dosage: UP TO 5 TIMES A DAY
     Route: 048
  3. NEURONTIN [Concomitant]
     Indication: PAIN IN EXTREMITY
     Dosage: UP TO 5 TIMES A DAY
     Route: 048
     Dates: start: 2005
  4. XANAX [Concomitant]
     Indication: ANXIETY
     Dosage: UP TO 5 TIMES A DAY
     Route: 048
     Dates: start: 2003
  5. ESTROGENS CONJUGATED [Concomitant]
     Indication: HYSTERECTOMY
     Route: 048
     Dates: start: 2002
  6. XYZAL [Concomitant]
     Indication: HYPERSENSITIVITY
     Route: 048
     Dates: start: 2012
  7. FLEXERIL [Concomitant]
     Indication: MUSCLE SPASMS
     Route: 048
     Dates: start: 2006

REACTIONS (18)
  - Pneumonia [Recovered/Resolved]
  - Drug withdrawal syndrome [Recovered/Resolved]
  - Drug ineffective [Not Recovered/Not Resolved]
  - Heart rate increased [Recovered/Resolved]
  - Wrong technique in drug usage process [Unknown]
  - Drug dose omission [Unknown]
  - Product quality issue [Unknown]
  - Product quality issue [Unknown]
  - Product quality issue [Unknown]
  - Product quality issue [Unknown]
  - Application site irritation [Not Recovered/Not Resolved]
  - Wrong technique in drug usage process [Recovered/Resolved]
  - Tremor [Recovered/Resolved]
  - Fear [Recovered/Resolved]
  - Malaise [Recovered/Resolved]
  - Feeling abnormal [Recovered/Resolved]
  - Drug administered at inappropriate site [Unknown]
  - Fatigue [Not Recovered/Not Resolved]
